FAERS Safety Report 4959189-8 (Version None)
Quarter: 2006Q1

REPORT INFORMATION
  Report Type: 
  Country: None (occurrence: None)
  Receive Date: 20060127
  Receipt Date: 20041129
  Transmission Date: 20060701
  Serious: Yes (Life-Threatening, Hospitalization, Other)
  Sender: FDA-Public Use
  Company Number: 04-11-1563

PATIENT
  Age: 24 Year
  Sex: Male
  Weight: 110.6777 kg

DRUGS (4)
  1. CLOZAPINE [Suspect]
     Indication: SCHIZOPHRENIA, PARANOID TYPE
     Dosage: 375MG BID, ORAL
     Route: 048
     Dates: start: 20040810, end: 20041018
  2. TRILEPTAL [Concomitant]
  3. CITRUCEL (METHYLCELLULOSE) [Concomitant]
  4. FAMOTIDINE [Concomitant]

REACTIONS (2)
  - AGRANULOCYTOSIS [None]
  - PYREXIA [None]
